FAERS Safety Report 8579118-8 (Version None)
Quarter: 2012Q3

REPORT INFORMATION
  Report Type: 
  Country: None (occurrence: None)
  Receive Date: 20120808
  Receipt Date: 20120731
  Transmission Date: 20120928
  Serious: Yes (Other)
  Sender: FDA-Public Use
  Company Number: JP-VERTEX PHARMACEUTICALS INC.-AE-2012-004724

PATIENT
  Age: 52 Year
  Sex: Male

DRUGS (24)
  1. PEG-INTRON [Concomitant]
     Indication: HEPATITIS C
     Route: 058
     Dates: start: 20120207, end: 20120313
  2. REBETOL [Concomitant]
     Route: 048
     Dates: start: 20120424, end: 20120430
  3. URSO 250 [Concomitant]
     Route: 048
     Dates: end: 20120312
  4. TELAVIC (TELAPREVIR) [Suspect]
     Route: 048
     Dates: start: 20120403, end: 20120416
  5. PEG-INTRON [Concomitant]
     Route: 058
     Dates: start: 20120403, end: 20120403
  6. PEG-INTRON [Concomitant]
     Route: 058
     Dates: start: 20120703, end: 20120710
  7. REBETOL [Concomitant]
     Indication: HEPATITIS C
     Route: 048
     Dates: start: 20120207, end: 20120305
  8. CONFATANIN [Concomitant]
     Route: 048
     Dates: start: 20120206, end: 20120318
  9. TELAVIC (TELAPREVIR) [Suspect]
     Indication: HEPATITIS C
     Route: 048
     Dates: start: 20120207, end: 20120318
  10. TELAVIC (TELAPREVIR) [Suspect]
     Route: 048
     Dates: start: 20120417, end: 20120508
  11. PEG-INTRON [Concomitant]
     Route: 058
     Dates: start: 20120410, end: 20120410
  12. PEG-INTRON [Concomitant]
     Route: 058
     Dates: start: 20120717
  13. REBETOL [Concomitant]
     Route: 048
     Dates: start: 20120313, end: 20120318
  14. REBETOL [Concomitant]
     Route: 048
     Dates: start: 20120403, end: 20120423
  15. REBETOL [Concomitant]
     Route: 048
     Dates: start: 20120501, end: 20120507
  16. AMLODIPINE [Concomitant]
     Route: 048
     Dates: start: 20110606, end: 20120508
  17. PEG-INTRON [Concomitant]
     Route: 058
     Dates: start: 20120508, end: 20120508
  18. REBETOL [Concomitant]
     Route: 048
     Dates: start: 20120306, end: 20120312
  19. OLMESARTAN MEDOXOMIL [Concomitant]
     Route: 048
     Dates: start: 20110606, end: 20120507
  20. PEG-INTRON [Concomitant]
     Route: 058
     Dates: start: 20120515, end: 20120626
  21. REBETOL [Concomitant]
     Route: 048
     Dates: start: 20120508
  22. OLMESARTAN MEDOXOMIL [Concomitant]
     Route: 048
     Dates: start: 20120508
  23. PEG-INTRON [Concomitant]
     Route: 058
     Dates: start: 20120417, end: 20120501
  24. NESINA [Concomitant]
     Route: 048
     Dates: start: 20120113

REACTIONS (4)
  - HYPERURICAEMIA [None]
  - NEUTROPHIL COUNT DECREASED [None]
  - HAEMOGLOBIN DECREASED [None]
  - WHITE BLOOD CELL COUNT DECREASED [None]
